FAERS Safety Report 8389977 (Version 4)
Quarter: 2013Q1

REPORT INFORMATION
  Report Type: Spontaneous
  Country: NO (occurrence: NO)
  Receive Date: 20120203
  Receipt Date: 20130214
  Transmission Date: 20140127
  Serious: Yes (Hospitalization, Other)
  Sender: FDA-Public Use
  Company Number: PHHY2012NO008654

PATIENT
  Age: 23 Year
  Sex: Male
  Weight: 78 kg

DRUGS (4)
  1. LEPONEX [Suspect]
     Indication: SCHIZOAFFECTIVE DISORDER
     Dosage: UNK
  2. LEPONEX [Suspect]
     Dosage: 100 MG MORNING AND 550 MG IN THE EVENING
     Dates: start: 20100901, end: 20111112
  3. OMEGA 3 [Concomitant]
  4. SOBRIL [Concomitant]
     Indication: INSOMNIA
     Dosage: WHEN NEEDED.
     Dates: start: 20110801, end: 20111101

REACTIONS (8)
  - Dependence [Unknown]
  - Dysuria [Not Recovered/Not Resolved]
  - Anxiety [Recovered/Resolved]
  - Drug effect decreased [Not Recovered/Not Resolved]
  - Aggression [Unknown]
  - Discomfort [Unknown]
  - Thinking abnormal [Unknown]
  - Sleep disorder [Unknown]
